FAERS Safety Report 5109135-1 (Version None)
Quarter: 2006Q3

REPORT INFORMATION
  Report Type: 
  Country: None (occurrence: None)
  Receive Date: 20060920
  Receipt Date: 20060503
  Transmission Date: 20061208
  Serious: Yes (Hospitalization)
  Sender: FDA-Public Use
  Company Number: US-AMGEN-US178584

PATIENT
  Sex: Male
  Weight: 71.3 kg

DRUGS (3)
  1. PROCRIT [Suspect]
     Indication: PRE-EXISTING DISEASE
     Dates: start: 20060106
  2. RIBAVIRIN [Suspect]
     Indication: HEPATITIS C
     Dates: start: 20060201, end: 20060401
  3. PEGASYS [Concomitant]
     Dates: start: 20060201, end: 20060401

REACTIONS (5)
  - ANAEMIA [None]
  - CEREBROVASCULAR ACCIDENT [None]
  - CONDITION AGGRAVATED [None]
  - IRON DEFICIENCY [None]
  - RENAL FAILURE CHRONIC [None]
